FAERS Safety Report 5859620-X (Version None)
Quarter: 2008Q3

REPORT INFORMATION
  Report Type: 
  Country: None (occurrence: None)
  Receive Date: 20080827
  Receipt Date: 20080812
  Transmission Date: 20090109
  Serious: Yes (Other)
  Sender: FDA-Public Use
  Company Number: VE-GENENTECH-266171

PATIENT
  Age: 61 Year
  Sex: Male

DRUGS (1)
  1. XOLAIR [Suspect]
     Indication: ASTHMA
     Dosage: 300 MG, UNK

REACTIONS (2)
  - CYTOMEGALOVIRUS SEROLOGY [None]
  - LYMPHADENOPATHY [None]
